FAERS Safety Report 7654283-5 (Version None)
Quarter: 2011Q3

REPORT INFORMATION
  Report Type: 
  Country: None (occurrence: None)
  Receive Date: 20110803
  Receipt Date: 20110712
  Transmission Date: 20111222
  Serious: Yes (Other)
  Sender: FDA-Public Use
  Company Number: PHHY2011NL62747

PATIENT
  Sex: Female

DRUGS (2)
  1. ACETAMINOPHEN [Suspect]
     Indication: NEURALGIA
     Dosage: 3 DF, TID
     Route: 048
     Dates: start: 20050525, end: 20110525
  2. DICLOFENAC SODIUM [Suspect]
     Dosage: 100 MG, UNK
     Route: 054
     Dates: start: 20040525

REACTIONS (2)
  - EPISTAXIS [None]
  - HAEMORRHAGIC DIATHESIS [None]
